FAERS Safety Report 4924675-3 (Version None)
Quarter: 2006Q1

REPORT INFORMATION
  Report Type: 
  Country: None (occurrence: None)
  Receive Date: 20060222
  Receipt Date: 20060210
  Transmission Date: 20060701
  Serious: Yes (Other)
  Sender: FDA-Public Use
  Company Number: 2005-03-0855

PATIENT
  Age: 66 Year
  Sex: Female

DRUGS (12)
  1. CELESTAMINE                    (BETAMETHASONE/DEXCHLORPHENIRAMINE MAL [Suspect]
     Indication: PRURITUS
     Dosage: 6-3-2 TABS ORAL; 6 TABS ORAL; 3 TABS ORAL; 2 TABS ORAL
     Route: 048
     Dates: start: 20050206, end: 20050210
  2. CELESTAMINE                    (BETAMETHASONE/DEXCHLORPHENIRAMINE MAL [Suspect]
     Indication: PRURITUS
     Dosage: 6-3-2 TABS ORAL; 6 TABS ORAL; 3 TABS ORAL; 2 TABS ORAL
     Route: 048
     Dates: start: 20050211, end: 20050308
  3. CELESTAMINE                    (BETAMETHASONE/DEXCHLORPHENIRAMINE MAL [Suspect]
     Indication: PRURITUS
     Dosage: 6-3-2 TABS ORAL; 6 TABS ORAL; 3 TABS ORAL; 2 TABS ORAL
     Route: 048
     Dates: start: 20050206, end: 20050318
  4. CELESTAMINE                    (BETAMETHASONE/DEXCHLORPHENIRAMINE MAL [Suspect]
     Indication: PRURITUS
     Dosage: 6-3-2 TABS ORAL; 6 TABS ORAL; 3 TABS ORAL; 2 TABS ORAL
     Route: 048
     Dates: start: 20050309, end: 20050318
  5. METHYLCOBAL [Concomitant]
  6. MEXITIL [Concomitant]
  7. RENAGEL (SEVELAMER HCL) TABLETS [Concomitant]
  8. AMLODIPINE BESILATE TABLETS [Concomitant]
  9. LANSOPRAZOLE [Concomitant]
  10. ALFAROL [Concomitant]
  11. MICARDIS [Concomitant]
  12. BUDESONIDE [Concomitant]

REACTIONS (1)
  - HALLUCINATION [None]
